FAERS Safety Report 4959588-4 (Version None)
Quarter: 2006Q1

REPORT INFORMATION
  Report Type: 
  Country: None (occurrence: None)
  Receive Date: 20060324
  Receipt Date: 20060314
  Transmission Date: 20060701
  Serious: Yes (Other)
  Sender: FDA-Public Use
  Company Number: USA-2006-0023753

PATIENT
  Age: 38 Year
  Sex: Male

DRUGS (2)
  1. OXYCONTIN [Suspect]
     Indication: PROCEDURAL PAIN
     Dosage: SEE TEXT, ORAL
     Route: 048
  2. FELDENE [Concomitant]

REACTIONS (5)
  - INADEQUATE ANALGESIA [None]
  - SELF-MEDICATION [None]
  - SURGERY [None]
  - THERAPY REGIMEN CHANGED [None]
  - TREATMENT NONCOMPLIANCE [None]
